FAERS Safety Report 24056895 (Version 2)
Quarter: 2024Q3

REPORT INFORMATION
  Report Type: Spontaneous
  Country: JP (occurrence: JP)
  Receive Date: 20240706
  Receipt Date: 20240831
  Transmission Date: 20241016
  Serious: Yes (Life-Threatening, Hospitalization)
  Sender: ABBVIE
  Company Number: JP-TAKEDA-2024TJP010120

PATIENT
  Age: 70 Year
  Sex: Male

DRUGS (1)
  1. LEUPLIN [Suspect]
     Active Substance: LEUPROLIDE ACETATE
     Indication: Prostate cancer
     Dosage: 22.5 MILLIGRAM, ?PRO FOR INJECTION KIT 22.5 MG
     Route: 058

REACTIONS (1)
  - Platelet count decreased [Recovered/Resolved]
